FAERS Safety Report 5786595-4 (Version None)
Quarter: 2008Q2

REPORT INFORMATION
  Report Type: 
  Country: None (occurrence: None)
  Receive Date: 20080624
  Receipt Date: 20080610
  Transmission Date: 20081010
  Serious: Yes (Other)
  Sender: FDA-Public Use
  Company Number: BR-PFIZER INC-2008048171

PATIENT
  Sex: Female

DRUGS (3)
  1. XALATAN [Suspect]
     Indication: GLAUCOMA
     Route: 047
  2. FRONTAL [Concomitant]
     Route: 048
  3. ENALAPRIL MALEATE [Concomitant]
     Dosage: DAILY DOSE:5MG-TEXT:1/2 A TABLET TWICE A DAY.
     Route: 048

REACTIONS (3)
  - CATARACT OPERATION [None]
  - HERPES ZOSTER [None]
  - MEDICATION ERROR [None]
